FAERS Safety Report 9131729 (Version 1)
Quarter: 2013Q1

REPORT INFORMATION
  Report Type: Spontaneous
  Country: GB (occurrence: GB)
  Receive Date: 20130301
  Receipt Date: 20130301
  Transmission Date: 20140127
  Serious: Yes (Other)
  Sender: FDA-Public Use
  Company Number: GB-009507513-1303GBR000053

PATIENT
  Age: 27 Year
  Sex: Female
  Weight: 69 kg

DRUGS (1)
  1. NEXPLANON [Suspect]
     Indication: CONTRACEPTION
     Dosage: UNK
     Route: 058
     Dates: start: 20120828, end: 20130118

REACTIONS (2)
  - Depression [Recovering/Resolving]
  - Psychotic disorder [Recovering/Resolving]
